FAERS Safety Report 25145886 (Version 2)
Quarter: 2025Q4

REPORT INFORMATION
  Report Type: Report from Study
  Country: US (occurrence: US)
  Receive Date: 20250401
  Receipt Date: 20251208
  Transmission Date: 20260119
  Serious: Yes (Other)
  Sender: pharmaAND
  Company Number: US-Pharmaand-2025000266

PATIENT
  Age: 54 Year
  Sex: Female
  Weight: 70.62 kg

DRUGS (1)
  1. RUBRACA [Suspect]
     Active Substance: RUCAPARIB CAMSYLATE
     Indication: Rectal cancer
     Dosage: 300 MG 1 TABLET EVERY 12 HOURS
     Route: 048
     Dates: start: 20240219

REACTIONS (11)
  - Blood glucose increased [Unknown]
  - Glycosylated haemoglobin increased [Not Recovered/Not Resolved]
  - Pneumonia respiratory syncytial viral [Unknown]
  - Oxygen therapy [Unknown]
  - Seizure [Unknown]
  - Red blood cell count decreased [Unknown]
  - Haemoglobin decreased [Unknown]
  - Breast mass [Unknown]
  - Balance disorder [Unknown]
  - Respiratory tract infection [Unknown]
  - Nausea [Unknown]

NARRATIVE: CASE EVENT DATE: 20241201
